FAERS Safety Report 8198511-9 (Version None)
Quarter: 2012Q1

REPORT INFORMATION
  Report Type: 
  Country: None (occurrence: None)
  Receive Date: 20120309
  Receipt Date: 20120306
  Transmission Date: 20120608
  Serious: Yes (Death, Other)
  Sender: FDA-Public Use
  Company Number: PHHY2012CN019742

PATIENT
  Age: 76 Year
  Sex: Male

DRUGS (10)
  1. DEXAMETHASONE [Suspect]
     Route: 061
  2. ITRACONAZOLE [Concomitant]
  3. AMPHOTERICIN B [Concomitant]
  4. IMMUNE GLOBULIN (HUMAN) [Concomitant]
  5. PIDOTIMOD [Concomitant]
  6. METHYLPREDNISOLONE [Suspect]
     Dosage: 60 MG, PER DAY
  7. IMIPENEM [Concomitant]
  8. ALBUMIN (HUMAN) [Concomitant]
  9. MOXIFLOXACIN [Suspect]
     Indication: PROPHYLAXIS
     Dosage: 2 MG, PER DAY
  10. METHYLPREDNISOLONE [Suspect]
     Dosage: 40 MG, PER DAY

REACTIONS (6)
  - PULMONARY HAEMORRHAGE [None]
  - ANGINA PECTORIS [None]
  - NECROSIS [None]
  - ZYGOMYCOSIS [None]
  - DIABETES MELLITUS [None]
  - CONDITION AGGRAVATED [None]
